FAERS Safety Report 5450331-1 (Version None)
Quarter: 2007Q3

REPORT INFORMATION
  Report Type: 
  Country: None (occurrence: None)
  Receive Date: 20070912
  Receipt Date: 20070905
  Transmission Date: 20080115
  Serious: Yes (Hospitalization)
  Sender: FDA-Public Use
  Company Number: US-GENENTECH-247243

PATIENT
  Sex: Male
  Weight: 99.7 kg

DRUGS (5)
  1. SOMATROPIN [Suspect]
     Indication: HYPOPITUITARISM
     Dosage: 3.5 MG, 6/WEEK
     Route: 058
     Dates: start: 20030701
  2. SYNTHROID [Concomitant]
     Indication: DRUG USE FOR UNKNOWN INDICATION
     Dosage: 88 A?G, QD
     Route: 048
  3. CORTEF [Concomitant]
     Indication: DRUG USE FOR UNKNOWN INDICATION
     Dosage: 7.5 MG, BID
     Route: 048
  4. CORTEF [Concomitant]
     Dosage: 5 MG, QD
     Route: 048
  5. TESTOSTERONE [Concomitant]
     Indication: DRUG USE FOR UNKNOWN INDICATION
     Dosage: 100 MG, 1/MONTH
     Route: 030
     Dates: start: 20050607

REACTIONS (2)
  - PNEUMONIA [None]
  - RESPIRATORY DISTRESS [None]
